FAERS Safety Report 10120163 (Version 1)
Quarter: 2014Q2

REPORT INFORMATION
  Report Type: Spontaneous
  Country: GR (occurrence: GR)
  Receive Date: 20140426
  Receipt Date: 20140426
  Transmission Date: 20141212
  Serious: No
  Sender: FDA-Public Use
  Company Number: PHHY2014GR049775

PATIENT
  Sex: Female

DRUGS (1)
  1. TASIGNA [Suspect]
     Indication: LEUKAEMIA
     Dosage: UNK UKN, UNK
     Dates: start: 20140418

REACTIONS (2)
  - Emotional distress [Unknown]
  - Inappropriate schedule of drug administration [Unknown]
